FAERS Safety Report 10577653 (Version 2)
Quarter: 2014Q4

REPORT INFORMATION
  Report Type: Spontaneous
  Country: NL (occurrence: NL)
  Receive Date: 20141111
  Receipt Date: 20141125
  Transmission Date: 20150529
  Serious: No
  Sender: FDA-Public Use
  Company Number: NL-ABBVIE-14P-114-1303012-00

PATIENT
  Age: 25 Year
  Sex: Male

DRUGS (1)
  1. ADALIMUMAB [Suspect]
     Active Substance: ADALIMUMAB
     Indication: CROHN^S DISEASE
     Route: 065

REACTIONS (8)
  - Pyoderma gangrenosum [Recovered/Resolved]
  - Skin ulcer [Recovered/Resolved]
  - Rash papular [Recovered/Resolved]
  - Lymphangitis [Recovered/Resolved]
  - Arthropod bite [Recovered/Resolved]
  - Skin ulcer [Recovered/Resolved]
  - Hyperhidrosis [Recovered/Resolved]
  - Atypical mycobacterial infection [Recovered/Resolved]

NARRATIVE: CASE EVENT DATE: 201304
